FAERS Safety Report 5717007-4 (Version None)
Quarter: 2008Q2

REPORT INFORMATION
  Report Type: 
  Country: None (occurrence: None)
  Receive Date: 20080423
  Receipt Date: 20080414
  Transmission Date: 20081010
  Serious: Yes (Death)
  Sender: FDA-Public Use
  Company Number: 2007EN000147

PATIENT
  Age: 35 Year
  Sex: Female
  Weight: 60.78 kg

DRUGS (13)
  1. OPANA ER [Suspect]
     Indication: PAIN
     Dosage: 20 MG, 2 TABS BID, PER ORAL
     Route: 048
     Dates: start: 20070407
  2. OPANA [Suspect]
     Indication: BREAKTHROUGH PAIN
     Dosage: 5MG, 1 Q12H, PER ORAL
     Route: 048
     Dates: start: 20070407
  3. AMITRIPTLINE HCL [Suspect]
     Indication: DEPRESSION
     Dosage: 300 MG, 1 TAB QHS, PER ORAL
     Route: 048
     Dates: end: 20070509
  4. ZOLOFT [Suspect]
     Indication: DEPRESSION
     Dosage: 100 MG, 1 TAB DAILY, PER ORAL
     Route: 048
     Dates: end: 20070509
  5. KLONOPIN [Suspect]
     Indication: DRUG USE FOR UNKNOWN INDICATION
     Dosage: 2 MG, 3 TABS DAILY, PER ORAL
     Route: 048
     Dates: end: 20070509
  6. DURAGESIC-100 [Suspect]
     Indication: PAIN
     Dosage: 100 MCG, 1 PATCH EVERY 3 DAYS, TRANSDERMAL
     Route: 062
     Dates: start: 20070401, end: 20070509
  7. VICODIN ES [Suspect]
     Indication: PAIN
     Dosage: 1 TAB 4 TIMES DAILY, PER  ORAL
     Route: 048
     Dates: end: 20070509
  8. LUNESTA [Suspect]
     Indication: DRUG USE FOR UNKNOWN INDICATION
     Dosage: 3 MG, 1 TAB QHS, PER ORAL
     Route: 048
     Dates: end: 20070509
  9. DIPHENHYDRAMINE HCL [Suspect]
  10. METHADONE HCL [Suspect]
  11. PROVIGIL [Suspect]
     Indication: DRUG USE FOR UNKNOWN INDICATION
     Dosage: 200 MG
     Dates: end: 20070509
  12. LEVOXYL [Concomitant]
  13. ARAVA [Concomitant]

REACTIONS (14)
  - ACCIDENTAL DEATH [None]
  - BLOOD ELECTROLYTES ABNORMAL [None]
  - BRAIN OEDEMA [None]
  - CONTUSION [None]
  - DRUG TOXICITY [None]
  - EXCORIATION [None]
  - EXOSTOSIS [None]
  - EXTRAVASATION BLOOD [None]
  - HEPATIC CONGESTION [None]
  - INADEQUATE ANALGESIA [None]
  - NERVOUS SYSTEM DISORDER [None]
  - PULMONARY CONGESTION [None]
  - PULMONARY OEDEMA [None]
  - SCLERAL DISORDER [None]
